FAERS Safety Report 10112320 (Version 2)
Quarter: 2014Q2

REPORT INFORMATION
  Report Type: Spontaneous
  Country: FR (occurrence: FR)
  Receive Date: 20140425
  Receipt Date: 20140430
  Transmission Date: 20141212
  Serious: Yes (Life-Threatening, Other)
  Sender: FDA-Public Use
  Company Number: FR-PFIZER INC-2014115434

PATIENT
  Age: 69 Year
  Sex: Male

DRUGS (7)
  1. CORDARONE [Suspect]
     Indication: ATRIAL FIBRILLATION
     Dosage: UNK
     Route: 048
  2. METFORMIN HCL [Suspect]
     Indication: TYPE 2 DIABETES MELLITUS
     Dosage: 1 DF, DAILY
     Route: 048
     Dates: start: 200804
  3. ALLOPURINOL [Suspect]
     Indication: HYPERURICAEMIA
     Dosage: 1 DF, DAILY
     Route: 048
  4. PREVISCAN [Suspect]
     Indication: THROMBOSIS PROPHYLAXIS
     Dosage: UNK
     Route: 048
     Dates: start: 200310
  5. LEVOTHYROX [Suspect]
     Indication: THYROIDITIS
     Dosage: 75 MG, DAILY
     Route: 048
     Dates: start: 2003
  6. COKENZEN [Suspect]
     Indication: HYPERTENSION
     Dosage: 1 DF, DAILY
     Dates: start: 200707, end: 200904
  7. APROVEL [Concomitant]
     Indication: HYPERTENSION
     Dosage: UNK
     Dates: start: 2007

REACTIONS (3)
  - Metastasis [Recovered/Resolved with Sequelae]
  - Shock haemorrhagic [Unknown]
  - Atrial fibrillation [Unknown]
